FAERS Safety Report 6032767-3 (Version None)
Quarter: 2009Q1

REPORT INFORMATION
  Report Type: 
  Country: None (occurrence: None)
  Receive Date: 20090107
  Receipt Date: 20090107
  Transmission Date: 20090719
  Serious: No
  Sender: FDA-Public Use
  Company Number: None

PATIENT
  Sex: Female
  Weight: 49.8957 kg

DRUGS (1)
  1. ACTONEL [Suspect]
     Indication: OSTEOPOROSIS PROPHYLAXIS
     Dosage: 1 PILL ONCE A MONTH
     Dates: start: 20080104, end: 20080104

REACTIONS (5)
  - ABDOMINAL DISCOMFORT [None]
  - ARTHRALGIA [None]
  - CHEST PAIN [None]
  - GAIT DISTURBANCE [None]
  - HEADACHE [None]
